FAERS Safety Report 22295712 (Version 1)
Quarter: 2023Q2

REPORT INFORMATION
  Report Type: Spontaneous
  Country: None (occurrence: PT)
  Receive Date: 20230508
  Receipt Date: 20230508
  Transmission Date: 20230722
  Serious: Yes (Other)
  Sender: FDA-Public Use
  Company Number: PT-Canton Laboratories, LLC-2141227

PATIENT
  Age: 77 Year
  Sex: Male

DRUGS (1)
  1. NAPROSYN [Suspect]
     Active Substance: NAPROXEN
     Indication: Arthralgia

REACTIONS (3)
  - Pericardial effusion [Unknown]
  - Eosinophilic pleural effusion [Unknown]
  - Eosinophilia [Unknown]
